FAERS Safety Report 7256165-X (Version None)
Quarter: 2011Q1

REPORT INFORMATION
  Report Type: 
  Country: None (occurrence: None)
  Receive Date: 20110129
  Receipt Date: 20100604
  Transmission Date: 20110831
  Serious: No
  Sender: FDA-Public Use
  Company Number: US-ABBOTT-10P-163-0648859-00

PATIENT
  Age: 59 Year
  Sex: Female

DRUGS (18)
  1. HUMIRA [Suspect]
     Indication: RHEUMATOID ARTHRITIS
     Dates: start: 20100507
  2. PREDNISONE [Concomitant]
     Indication: RHEUMATOID ARTHRITIS
  3. COREG [Concomitant]
     Indication: CARDIAC FAILURE CONGESTIVE
  4. DARVOCET-N 100 [Concomitant]
     Indication: PAIN
     Dosage: 100/650 2 EVERY 4-6 HOURS
  5. CRESTOR [Concomitant]
     Indication: HYPERLIPIDAEMIA
  6. ZINC [Concomitant]
     Indication: IMMUNE SYSTEM DISORDER
  7. ADVAIR [Concomitant]
     Indication: CARDIAC FAILURE CONGESTIVE
     Dosage: 1-2
  8. CALCITRIOL [Concomitant]
     Indication: TETANY
  9. VITAMIN B-12 [Concomitant]
     Indication: VITAMIN SUPPLEMENTATION
  10. ATACAND [Concomitant]
     Indication: HYPERTENSION
  11. HYDROCHLOROTHIAZIDE [Concomitant]
     Indication: DIURETIC THERAPY
  12. RIFAMPIN [Concomitant]
     Indication: TUBERCULOSIS
  13. PROTONIX [Concomitant]
     Indication: DYSPEPSIA
  14. FOLIC ACID [Concomitant]
     Indication: MOUTH ULCERATION
  15. NIACIN [Concomitant]
     Indication: TINNITUS
  16. VITAMIN D [Concomitant]
     Indication: PRODUCT USED FOR UNKNOWN INDICATION
  17. SYNTHROID [Concomitant]
     Indication: HYPERTHYROIDISM
  18. SELENIUM [Concomitant]
     Indication: PRODUCT USED FOR UNKNOWN INDICATION

REACTIONS (3)
  - GAIT DISTURBANCE [None]
  - DYSPNOEA [None]
  - BACK PAIN [None]
